FAERS Safety Report 17498590 (Version 5)
Quarter: 2023Q2

REPORT INFORMATION
  Report Type: Spontaneous
  Country: GR (occurrence: GR)
  Receive Date: 20200304
  Receipt Date: 20230519
  Transmission Date: 20230722
  Serious: Yes (Death)
  Sender: FDA-Public Use
  Company Number: GR-PFIZER INC-2020033859

PATIENT
  Age: 72 Year
  Sex: Male

DRUGS (16)
  1. HUMAN IMMUNOGLOBULIN G [Suspect]
     Active Substance: HUMAN IMMUNOGLOBULIN G
     Indication: Haemophagocytic lymphohistiocytosis
     Dosage: UNK
     Route: 042
  2. PREDNISOLONE [Suspect]
     Active Substance: PREDNISOLONE
     Indication: Respiratory tract infection
     Dosage: UNK
     Route: 065
  3. AMOXICILLIN\CLAVULANIC ACID [Suspect]
     Active Substance: AMOXICILLIN\CLAVULANIC ACID
     Indication: Respiratory tract infection
     Dosage: UNK
     Route: 065
  4. CLARITHROMYCIN [Suspect]
     Active Substance: CLARITHROMYCIN
     Indication: Respiratory tract infection
     Dosage: UNK
     Route: 065
  5. MOXIFLOXACIN [Suspect]
     Active Substance: MOXIFLOXACIN
     Indication: Respiratory tract infection
     Dosage: UNK
     Route: 042
  6. AMIKACIN [Suspect]
     Active Substance: AMIKACIN
     Indication: Respiratory tract infection
     Dosage: UNK
     Route: 042
  7. PIPERACILLIN SODIUM\TAZOBACTAM SODIUM [Suspect]
     Active Substance: PIPERACILLIN SODIUM\TAZOBACTAM SODIUM
     Indication: Respiratory tract infection
     Dosage: UNK
     Route: 042
  8. MEROPENEM [Suspect]
     Active Substance: MEROPENEM
     Indication: Respiratory tract infection
     Dosage: UNK
     Route: 042
  9. AMPHOTERICIN B [Suspect]
     Active Substance: AMPHOTERICIN B
     Indication: Respiratory tract infection
     Dosage: UNK
     Route: 042
  10. VITAMIN B12 [Suspect]
     Active Substance: CYANOCOBALAMIN
     Indication: Product used for unknown indication
     Dosage: UNK
     Route: 030
  11. VANCOMYCIN [Suspect]
     Active Substance: VANCOMYCIN
     Indication: Respiratory tract infection
     Dosage: UNK
     Route: 042
  12. GANCICLOVIR [Suspect]
     Active Substance: GANCICLOVIR
     Indication: Respiratory tract infection
     Dosage: UNK
     Route: 065
  13. CEFUROXIME [Suspect]
     Active Substance: CEFUROXIME
     Indication: Respiratory tract infection
     Dosage: UNK
     Route: 065
  14. OSELTAMIVIR [Suspect]
     Active Substance: OSELTAMIVIR
     Indication: Respiratory tract infection
     Dosage: UNK
     Route: 065
  15. VANCOMYCIN HYDROCHLORIDE [Suspect]
     Active Substance: VANCOMYCIN HYDROCHLORIDE
     Indication: Respiratory tract infection
     Dosage: UNK
     Route: 065
  16. GANCICLOVIR SODIUM [Suspect]
     Active Substance: GANCICLOVIR SODIUM
     Indication: Respiratory tract infection
     Dosage: UNK
     Route: 065

REACTIONS (3)
  - Death [Fatal]
  - Drug ineffective for unapproved indication [Unknown]
  - Product use in unapproved indication [Unknown]
